FAERS Safety Report 13107819 (Version 1)
Quarter: 2017Q1

REPORT INFORMATION
  Report Type: Report from Study
  Country: US (occurrence: US)
  Receive Date: 20170112
  Receipt Date: 20170112
  Transmission Date: 20170428
  Serious: Yes (Other)
  Sender: FDA-Public Use
  Company Number: US-GILEAD-2016-0250427

PATIENT
  Age: 56 Year
  Sex: Female

DRUGS (2)
  1. AMBRISENTAN [Suspect]
     Active Substance: AMBRISENTAN
     Indication: PRODUCT USED FOR UNKNOWN INDICATION
     Dosage: 5 MG, QD
     Route: 065
  2. VELETRI [Suspect]
     Active Substance: EPOPROSTENOL
     Indication: PRODUCT USED FOR UNKNOWN INDICATION
     Route: 065

REACTIONS (10)
  - Myocardial infarction [Unknown]
  - Palpitations [Unknown]
  - Nasal congestion [Unknown]
  - Fatigue [Unknown]
  - Peripheral swelling [Unknown]
  - Cough [Unknown]
  - Diarrhoea [Unknown]
  - Drug ineffective [Unknown]
  - Vascular device user [Unknown]
  - Dyspnoea [Unknown]
